FAERS Safety Report 10047222 (Version 2)
Quarter: 2014Q1

REPORT INFORMATION
  Report Type: Spontaneous
  Country: US (occurrence: US)
  Receive Date: 20140331
  Receipt Date: 20140331
  Transmission Date: 20141002
  Serious: No
  Sender: FDA-Public Use
  Company Number: US-MYLANLABS-2013S1021248

PATIENT
  Age: 44 Year
  Sex: Female
  Weight: 54.43 kg

DRUGS (6)
  1. FENTANYL TRANSDERMAL SYSTEM [Suspect]
     Indication: NECK PAIN
     Dosage: CHANGED Q72H
     Route: 062
     Dates: start: 201211
  2. FENTANYL TRANSDERMAL SYSTEM [Suspect]
     Indication: HEADACHE
     Dosage: CHANGED Q72H
     Route: 062
     Dates: start: 201211
  3. ALPRAZOLAM [Concomitant]
     Indication: FIBROMYALGIA
  4. IBUPROFEN [Concomitant]
     Indication: PAIN
  5. ZOFRAN [Concomitant]
     Indication: NAUSEA
  6. BENAZEPRIL [Concomitant]
     Indication: BLOOD PRESSURE INCREASED

REACTIONS (5)
  - Drug effect decreased [Not Recovered/Not Resolved]
  - Pain [Not Recovered/Not Resolved]
  - Cold sweat [Not Recovered/Not Resolved]
  - Wrong technique in drug usage process [Not Recovered/Not Resolved]
  - Wrong technique in drug usage process [Not Recovered/Not Resolved]
